FAERS Safety Report 8467466-1 (Version None)
Quarter: 2012Q2

REPORT INFORMATION
  Report Type: 
  Country: None (occurrence: None)
  Receive Date: 20120620
  Receipt Date: 20120606
  Transmission Date: 20120825
  Serious: No
  Sender: FDA-Public Use
  Company Number: 2012AP001754

PATIENT
  Sex: Female

DRUGS (7)
  1. MYCOPHENOLATE MOFETIL [Suspect]
     Indication: OFF LABEL USE
  2. MYCOPHENOLATE MOFETIL [Suspect]
     Indication: SCLERITIS
  3. METHOTREXATE [Concomitant]
  4. CORTICOSTEROIDS [Concomitant]
  5. HUMMUNOSUPPRESSANTS [Concomitant]
  6. CORTICOSTEROIDS [Concomitant]
  7. NSAID'S [Concomitant]

REACTIONS (4)
  - LEUKOPENIA [None]
  - OFF LABEL USE [None]
  - LIVER FUNCTION TEST ABNORMAL [None]
  - ABDOMINAL DISCOMFORT [None]
